FAERS Safety Report 8409938-1 (Version None)
Quarter: 2012Q2

REPORT INFORMATION
  Report Type: 
  Country: None (occurrence: None)
  Receive Date: 20120605
  Receipt Date: 20120605
  Transmission Date: 20120825
  Serious: No
  Sender: FDA-Public Use
  Company Number: US-PFIZER INC-2012126419

PATIENT
  Sex: Female
  Weight: 82.54 kg

DRUGS (5)
  1. CITALOPRAM [Concomitant]
     Indication: DEPRESSION
     Dosage: UNK
  2. PREMARIN [Suspect]
     Indication: VULVOVAGINAL DRYNESS
     Dosage: UNK, 3X/WEEK
     Route: 067
     Dates: start: 20120201
  3. AMLODIPINE [Concomitant]
     Indication: HYPERTENSION
     Dosage: UNK
  4. SIMVASTATIN [Concomitant]
     Indication: BLOOD CHOLESTEROL INCREASED
     Dosage: UNK
  5. PREMARIN [Suspect]
     Indication: FUNGAL INFECTION

REACTIONS (3)
  - MOOD ALTERED [None]
  - HEADACHE [None]
  - CRYING [None]
